FAERS Safety Report 14709767 (Version 1)
Quarter: 2018Q2

REPORT INFORMATION
  Report Type: Spontaneous
  Country: CN (occurrence: CN)
  Receive Date: 20180403
  Receipt Date: 20180403
  Transmission Date: 20180711
  Serious: Yes (Hospitalization, Other)
  Sender: FDA-Public Use
  Company Number: CN-MYLANLABS-2018M1020087

PATIENT
  Age: 4 Year
  Sex: Male

DRUGS (8)
  1. ITRACONAZOLE. [Suspect]
     Active Substance: ITRACONAZOLE
     Indication: RESPIRATORY TRACT INFECTION FUNGAL
     Route: 048
  2. VINDESINE [Interacting]
     Active Substance: VINDESINE
     Route: 065
     Dates: start: 20150902
  3. 6-MERCAPTOPURINE MONOHYDRATE [Concomitant]
     Active Substance: MERCAPTOPURINE
     Indication: ACUTE LYMPHOCYTIC LEUKAEMIA
     Dosage: FOR 56 DAYS
     Route: 065
  4. DEXAMETHASONE. [Concomitant]
     Active Substance: DEXAMETHASONE
     Indication: ACUTE LYMPHOCYTIC LEUKAEMIA
     Dosage: TWO DOSES
     Route: 037
  5. METHOTREXATE. [Concomitant]
     Active Substance: METHOTREXATE
     Dosage: TWO DOSES
     Route: 037
  6. VINDESINE [Interacting]
     Active Substance: VINDESINE
     Indication: ACUTE LYMPHOCYTIC LEUKAEMIA
     Route: 065
  7. METHOTREXATE. [Concomitant]
     Active Substance: METHOTREXATE
     Indication: ACUTE LYMPHOCYTIC LEUKAEMIA
     Dosage: FOR EIGHT DOSES
     Route: 065
  8. CYTARABINE. [Concomitant]
     Active Substance: CYTARABINE
     Indication: ACUTE LYMPHOCYTIC LEUKAEMIA
     Dosage: TWO DOSES
     Route: 037

REACTIONS (2)
  - Drug interaction [Recovered/Resolved]
  - Inappropriate antidiuretic hormone secretion [Recovered/Resolved]
